FAERS Safety Report 6298567-4 (Version None)
Quarter: 2009Q3

REPORT INFORMATION
  Report Type: 
  Country: None (occurrence: None)
  Receive Date: 20090803
  Receipt Date: 20090729
  Transmission Date: 20100115
  Serious: Yes (Other)
  Sender: FDA-Public Use
  Company Number: 09US000670

PATIENT
  Age: 45 Year
  Sex: Female
  Weight: 83.99 kg

DRUGS (1)
  1. PHENYLEPHRINE HYDROCHLORIDE 1% 648 (PHENYLEPHRINE HYDROCHLORIDE), NASA [Suspect]
     Indication: NASAL CONGESTION
     Dosage: 1 SPRAY EACH NOSTRIL, SINGLE, NASAL
     Route: 045
     Dates: start: 20090407, end: 20090407

REACTIONS (10)
  - ABNORMAL SENSATION IN EYE [None]
  - DEHYDRATION [None]
  - EYE IRRITATION [None]
  - EYE PAIN [None]
  - HEADACHE [None]
  - HYPERSENSITIVITY [None]
  - LACRIMATION INCREASED [None]
  - NASAL DISCOMFORT [None]
  - PHARYNGEAL OEDEMA [None]
  - RHINALGIA [None]
